FAERS Safety Report 9626226 (Version 2)
Quarter: 2014Q1

REPORT INFORMATION
  Report Type: Spontaneous
  Country: US (occurrence: US)
  Receive Date: 20131016
  Receipt Date: 20140220
  Transmission Date: 20141002
  Serious: Yes (Death)
  Sender: FDA-Public Use
  Company Number: US-NOVOPROD-389571

PATIENT
  Age: 62 Year
  Sex: Female
  Weight: 99.77 kg

DRUGS (1)
  1. VICTOZA [Suspect]
     Indication: TYPE 2 DIABETES MELLITUS
     Dosage: 18 MG/3 ML, QD
     Route: 058
     Dates: start: 20110809, end: 20120905

REACTIONS (1)
  - Pancreatic carcinoma [Fatal]
